FAERS Safety Report 20506461 (Version 1)
Quarter: 2022Q1

REPORT INFORMATION
  Report Type: Spontaneous
  Country: US (occurrence: None)
  Receive Date: 20220223
  Receipt Date: 20220223
  Transmission Date: 20220424
  Serious: No
  Sender: FDA-Public Use
  Company Number: None

PATIENT
  Sex: Female

DRUGS (3)
  1. IBRANCE [Suspect]
     Active Substance: PALBOCICLIB
     Indication: Breast cancer
     Route: 048
     Dates: start: 202201
  2. XGEVA [Concomitant]
     Active Substance: DENOSUMAB
  3. FULVESTRANT [Concomitant]
     Active Substance: FULVESTRANT

REACTIONS (3)
  - Dehydration [None]
  - Asthenia [None]
  - Dizziness [None]
